FAERS Safety Report 11130738 (Version 1)
Quarter: 2015Q2

REPORT INFORMATION
  Report Type: Spontaneous
  Country: US (occurrence: None)
  Receive Date: 20150520
  Receipt Date: 20150520
  Transmission Date: 20150821
  Serious: Yes (Other)
  Sender: FDA-Public Use
  Company Number: COL_19773_2015

PATIENT
  Age: 40 Year
  Sex: Female

DRUGS (1)
  1. COLGATE TOTAL ADVANCE WHITENING [Suspect]
     Active Substance: SODIUM FLUORIDE\TRICLOSAN
     Indication: PRODUCT USED FOR UNKNOWN INDICATION
     Dosage: COVERED WHOLE HEAD OF TOOTHBVRUSH/ONCE/ORAL
     Route: 048
     Dates: start: 20150509, end: 20150509

REACTIONS (1)
  - Hypersensitivity [None]

NARRATIVE: CASE EVENT DATE: 20150509
